FAERS Safety Report 24621876 (Version 5)
Quarter: 2025Q1

REPORT INFORMATION
  Report Type: Spontaneous
  Country: US (occurrence: US)
  Receive Date: 20241114
  Receipt Date: 20250219
  Transmission Date: 20250408
  Serious: Yes (Other)
  Sender: SANOFI AVENTIS
  Company Number: US-SA-2024SA329047

PATIENT
  Age: 86 Year
  Sex: Female

DRUGS (2)
  1. DUPIXENT [Suspect]
     Active Substance: DUPILUMAB
     Indication: Dermatitis atopic
     Dosage: 300 MG, QOW
     Route: 058
     Dates: end: 20250114
  2. FERROUS SULFATE [Suspect]
     Active Substance: FERROUS SULFATE

REACTIONS (14)
  - Melaena [Unknown]
  - Dry mouth [Unknown]
  - Faeces discoloured [Unknown]
  - Diarrhoea [Unknown]
  - Fatigue [Unknown]
  - Peripheral swelling [Unknown]
  - Feeling cold [Unknown]
  - Bone pain [Unknown]
  - Fall [Unknown]
  - Abnormal faeces [Unknown]
  - Insomnia [Unknown]
  - Dizziness [Unknown]
  - Vision blurred [Unknown]
  - Condition aggravated [Unknown]

NARRATIVE: CASE EVENT DATE: 20240901
